FAERS Safety Report 5629931-1 (Version None)
Quarter: 2008Q1

REPORT INFORMATION
  Report Type: 
  Country: None (occurrence: None)
  Receive Date: 20080218
  Receipt Date: 20080206
  Transmission Date: 20080703
  Serious: Yes (Other)
  Sender: FDA-Public Use
  Company Number: JP-ROCHE-545808

PATIENT
  Age: 26 Year
  Sex: Male

DRUGS (2)
  1. TAMIFLU [Suspect]
     Route: 048
     Dates: start: 20080121, end: 20080121
  2. TAMIFLU [Suspect]
     Route: 048
     Dates: start: 20080122, end: 20080123

REACTIONS (1)
  - LOSS OF CONSCIOUSNESS [None]
